FAERS Safety Report 23858113 (Version 5)
Quarter: 2025Q4

REPORT INFORMATION
  Report Type: Report from Study
  Country: CA (occurrence: CA)
  Receive Date: 20240515
  Receipt Date: 20251003
  Transmission Date: 20260117
  Serious: Yes (Other)
  Sender: TAKEDA
  Company Number: CA-TAKEDA-2024TUS046345

PATIENT
  Age: 34 Year
  Sex: Female

DRUGS (2)
  1. VEDOLIZUMAB [Suspect]
     Active Substance: VEDOLIZUMAB
     Indication: Colitis ulcerative
     Dosage: 300 MILLIGRAM
  2. VEDOLIZUMAB [Suspect]
     Active Substance: VEDOLIZUMAB
     Dosage: 300 MILLIGRAM, Q4WEEKS
     Dates: start: 20250307

REACTIONS (7)
  - Haematochezia [Unknown]
  - Colitis ulcerative [Unknown]
  - Large intestine polyp [Recovered/Resolved]
  - Therapeutic reaction time decreased [Unknown]
  - Frequent bowel movements [Unknown]
  - Fatigue [Unknown]
  - Upper respiratory tract infection [Unknown]
